FAERS Safety Report 12989605 (Version 1)
Quarter: 2016Q4

REPORT INFORMATION
  Report Type: Spontaneous
  Country: US (occurrence: US)
  Receive Date: 20161201
  Receipt Date: 20161201
  Transmission Date: 20170207
  Serious: Yes (Other)
  Sender: FDA-Public Use
  Company Number: US-TEVA-717008USA

PATIENT
  Sex: Female

DRUGS (1)
  1. COPAXONE [Suspect]
     Active Substance: GLATIRAMER ACETATE
     Dosage: FORM STRENGTH UNKNOWN

REACTIONS (11)
  - Diarrhoea [Unknown]
  - Paralysis [Recovered/Resolved]
  - Movement disorder [Unknown]
  - Balance disorder [Unknown]
  - Cognitive disorder [Unknown]
  - Asthenia [Unknown]
  - Hemiparesis [Unknown]
  - Memory impairment [Unknown]
  - Visual impairment [Unknown]
  - Aphasia [Unknown]
  - Peroneal nerve palsy [Unknown]
